FAERS Safety Report 9332830 (Version 1)
Quarter: 2013Q2

REPORT INFORMATION
  Report Type: Spontaneous
  Country: TR (occurrence: None)
  Receive Date: 20130603
  Receipt Date: 20130603
  Transmission Date: 20140414
  Serious: Yes (Other)
  Sender: FDA-Public Use
  Company Number: 2013P1006442

PATIENT
  Age: 10 Day
  Sex: Male
  Weight: 1.5 kg

DRUGS (1)
  1. DEXAMETHASONE [Suspect]
     Indication: STRIDOR
     Route: 042

REACTIONS (1)
  - Hypertrophic cardiomyopathy [None]
